FAERS Safety Report 5075817-3 (Version None)
Quarter: 2006Q3

REPORT INFORMATION
  Report Type: 
  Country: None (occurrence: None)
  Receive Date: 20060809
  Receipt Date: 20060802
  Transmission Date: 20061208
  Serious: Yes (Other)
  Sender: FDA-Public Use
  Company Number: JP-JPN-A200602949

PATIENT
  Age: 56 Year
  Sex: Female

DRUGS (5)
  1. ZOVIRAX [Suspect]
     Indication: HERPES ZOSTER
     Dosage: 750MG PER DAY
     Route: 042
     Dates: start: 20060529, end: 20060601
  2. VIDARABINE [Concomitant]
     Dates: start: 20060529
  3. LOXOPROFEN SODIUM [Concomitant]
     Dosage: 60MG THREE TIMES PER DAY
     Dates: start: 20060529
  4. AMITRIPTYLINE HYDROCHLORIDE [Concomitant]
     Dosage: 1TAB PER DAY
     Dates: start: 20060529
  5. PREDNISOLONE [Concomitant]
     Dates: start: 20060530

REACTIONS (4)
  - ALANINE AMINOTRANSFERASE INCREASED [None]
  - ASPARTATE AMINOTRANSFERASE INCREASED [None]
  - GAMMA-GLUTAMYLTRANSFERASE INCREASED [None]
  - HEPATIC ENZYME INCREASED [None]
